FAERS Safety Report 7340789-5 (Version None)
Quarter: 2011Q1

REPORT INFORMATION
  Report Type: 
  Country: None (occurrence: None)
  Receive Date: 20110309
  Receipt Date: 20110304
  Transmission Date: 20110831
  Serious: Yes (Hospitalization)
  Sender: FDA-Public Use
  Company Number: US-PFIZER INC-2011048330

PATIENT
  Sex: Female
  Weight: 112.2 kg

DRUGS (9)
  1. ADVAIR DISKUS 100/50 [Concomitant]
     Dosage: 500/50 MG, 1X/DAY
  2. SIMVASTATIN [Concomitant]
     Indication: BLOOD CHOLESTEROL INCREASED
     Dosage: 40 MG, 1X/DAY
  3. PREDNISONE [Suspect]
     Indication: HORMONE REPLACEMENT THERAPY
     Dosage: 7.5 MG, 1X/DAY
     Dates: start: 20010905
  4. SERTRALINE [Concomitant]
     Indication: DEPRESSION
     Dosage: 100 MG, 1X/DAY
  5. SENSIPAR [Concomitant]
     Indication: DIALYSIS
     Dosage: 30 MG, 1X/DAY
  6. OMEPRAZOLE [Concomitant]
     Indication: GASTROOESOPHAGEAL REFLUX DISEASE
     Dosage: 20 MG, 2X/DAY
  7. GENOTROPIN [Suspect]
     Indication: HYPOPITUITARISM
     Dosage: 0.8 MG, 1X/DAY
     Route: 051
     Dates: start: 20010905, end: 20110201
  8. AVAPRO [Concomitant]
     Indication: HYPERTENSION
     Dosage: 300 MG, 1X/DAY
  9. SYNTHROID [Suspect]
     Indication: HORMONE REPLACEMENT THERAPY
     Dosage: 2000 UG, 1X/DAY
     Route: 048
     Dates: start: 20010905

REACTIONS (1)
  - PITUITARY TUMOUR RECURRENT [None]
